FAERS Safety Report 6731867-X (Version None)
Quarter: 2010Q2

REPORT INFORMATION
  Report Type: 
  Country: None (occurrence: None)
  Receive Date: 20100519
  Receipt Date: 20100514
  Transmission Date: 20101027
  Serious: Yes (Other)
  Sender: FDA-Public Use
  Company Number: CA-ALLERGAN-1006467US

PATIENT
  Age: 70 Year
  Sex: Female

DRUGS (1)
  1. RATIO-PREDNISOLONE [Suspect]
     Indication: DRUG USE FOR UNKNOWN INDICATION
     Dosage: 1 DF, Q4HR
     Route: 047
     Dates: start: 20100511

REACTIONS (1)
  - BLINDNESS TRANSIENT [None]
